FAERS Safety Report 20044930 (Version 2)
Quarter: 2021Q4

REPORT INFORMATION
  Report Type: Spontaneous
  Country: PT (occurrence: PT)
  Receive Date: 20211108
  Receipt Date: 20211202
  Transmission Date: 20220303
  Serious: Yes (Hospitalization, Other)
  Sender: FDA-Public Use
  Company Number: PT-NOVARTISPH-NVSC2021PT254879

PATIENT
  Age: 66 Year
  Sex: Male

DRUGS (2)
  1. AMOXICILLIN\CLAVULANIC ACID [Suspect]
     Active Substance: AMOXICILLIN\CLAVULANIC ACID
     Indication: Product used for unknown indication
     Dosage: UNK, UNKNOWN
     Route: 065
  2. IMATINIB [Suspect]
     Active Substance: IMATINIB
     Indication: Gastrointestinal stromal tumour
     Route: 065

REACTIONS (8)
  - Disorientation [Unknown]
  - Bipolar disorder [Unknown]
  - Memory impairment [Unknown]
  - Drug ineffective [Unknown]
  - Cholestasis [Unknown]
  - Anaemia [Unknown]
  - Tonsillitis [Unknown]
  - Off label use [Unknown]
